FAERS Safety Report 5713234-0 (Version None)
Quarter: 2008Q2

REPORT INFORMATION
  Report Type: 
  Country: None (occurrence: None)
  Receive Date: 20080422
  Receipt Date: 19990805
  Transmission Date: 20081010
  Serious: Yes (Death)
  Sender: FDA-Public Use
  Company Number: NL-ROCHE-212702

PATIENT
  Sex: Male
  Weight: 31.8 kg

DRUGS (2)
  1. INTERFERON ALFA-2A [Suspect]
     Indication: METASTATIC RENAL CELL CARCINOMA
     Route: 030
     Dates: start: 19990308, end: 19990729
  2. FUROSEMIDE [Suspect]
     Indication: DRUG USE FOR UNKNOWN INDICATION
     Route: 065
     Dates: start: 19990301, end: 19990729

REACTIONS (1)
  - MYOCARDIAL INFARCTION [None]
